FAERS Safety Report 5115187-5 (Version None)
Quarter: 2006Q3

REPORT INFORMATION
  Report Type: 
  Country: None (occurrence: None)
  Receive Date: 20060922
  Receipt Date: 20060915
  Transmission Date: 20061208
  Serious: Yes (Death)
  Sender: FDA-Public Use
  Company Number: 2005156995

PATIENT
  Age: 64 Year
  Sex: Male

DRUGS (6)
  1. NEURONTIN [Suspect]
     Indication: BIPOLAR DISORDER
     Dosage: 300 MG (100 MG, 3 IN 1 D), ORAL
     Route: 048
     Dates: start: 19990101
  2. ACETAMINOPHEN W/ CODEINE [Concomitant]
  3. VASOTEC [Concomitant]
  4. ESKALITH [Concomitant]
  5. INDOMETHACIN [Concomitant]
  6. TRAZODONE HCL [Concomitant]

REACTIONS (5)
  - BLOOD ALCOHOL INCREASED [None]
  - COMPLETED SUICIDE [None]
  - DROWNING [None]
  - DRUG INEFFECTIVE [None]
  - URINE ALCOHOL TEST POSITIVE [None]
